FAERS Safety Report 7658414-2 (Version None)
Quarter: 2011Q3

REPORT INFORMATION
  Report Type: 
  Country: None (occurrence: None)
  Receive Date: 20110805
  Receipt Date: 20110729
  Transmission Date: 20111222
  Serious: Yes (Other)
  Sender: FDA-Public Use
  Company Number: GB-ASTELLAS-2011EU005068

PATIENT
  Age: 51 Year
  Sex: Female
  Weight: 60 kg

DRUGS (4)
  1. VESICARE [Suspect]
     Indication: URINARY INCONTINENCE
     Dosage: 10 MG, UID/QD
     Route: 048
     Dates: start: 20110112
  2. OMEPRAZOLE [Suspect]
     Dosage: 20 MG, UNKNOWN/D
     Route: 048
  3. BENDROFLUAZIDE [Suspect]
     Dosage: 2.5 MG, UNKNOWN/D
     Route: 048
  4. SERTRALINE HYDROCHLORIDE [Suspect]
     Dosage: 50 MG, UNKNOWN/D
     Route: 048

REACTIONS (3)
  - ALCOHOL INTOLERANCE [None]
  - DISORIENTATION [None]
  - AMNESIA [None]
